FAERS Safety Report 4943813-X (Version None)
Quarter: 2006Q1

REPORT INFORMATION
  Report Type: 
  Country: None (occurrence: None)
  Receive Date: 20060310
  Receipt Date: 20060227
  Transmission Date: 20060701
  Serious: Yes (Other)
  Sender: FDA-Public Use
  Company Number: 2006029058

PATIENT

DRUGS (1)
  1. ATARAX [Suspect]
     Indication: ILL-DEFINED DISORDER
     Dosage: 25 MG (25 MG, 1 IN 1 D), INTRAMUSCULAR
     Route: 030

REACTIONS (2)
  - COMA HEPATIC [None]
  - PUPIL FIXED [None]
